FAERS Safety Report 7285996-5 (Version None)
Quarter: 2011Q1

REPORT INFORMATION
  Report Type: 
  Country: None (occurrence: None)
  Receive Date: 20110210
  Receipt Date: 20101228
  Transmission Date: 20110831
  Serious: Yes (Hospitalization, Other)
  Sender: FDA-Public Use
  Company Number: US-BAYER-201023244NA

PATIENT
  Sex: Female
  Weight: 83.9 kg

DRUGS (20)
  1. YASMIN [Suspect]
     Indication: ORAL CONTRACEPTION
     Route: 048
     Dates: start: 20061101, end: 20061215
  2. SEROQUEL [Concomitant]
     Dosage: UNK
     Dates: start: 20070401, end: 20080501
  3. LAMICTAL [Concomitant]
     Dosage: UNK
     Dates: start: 20070301, end: 20080501
  4. LORAZEPAM [Concomitant]
     Dosage: UNK
     Dates: start: 20070401, end: 20080501
  5. DEXLANSOPRAZOLE [Concomitant]
     Indication: GASTRIC DISORDER
  6. HYDROCHLOROTHIAZIDE [Concomitant]
  7. ASACOL [Concomitant]
     Indication: COLITIS
  8. FEXOFENADINE [Concomitant]
     Dosage: UNK
     Dates: start: 20070401, end: 20080501
  9. VALTREX [Concomitant]
     Dosage: UNK
     Dates: start: 20070401, end: 20080501
  10. TOPAMAX [Concomitant]
     Dosage: UNK
     Dates: start: 20070401, end: 20080501
  11. YAZ [Suspect]
     Indication: ORAL CONTRACEPTION
     Dosage: UNK
     Route: 048
     Dates: start: 20070401, end: 20080501
  12. SERTRALINE [Concomitant]
     Dosage: UNK
     Dates: start: 20070401, end: 20080501
  13. CITALOPRAM [Concomitant]
     Dosage: UNK
     Dates: start: 20070401, end: 20080501
  14. AMOXICILLIN [Concomitant]
     Dosage: UNK
     Dates: start: 20070401, end: 20080501
  15. MOTRIN [Concomitant]
  16. ALLEGRA [Concomitant]
     Indication: MULTIPLE ALLERGIES
  17. UNCODEABLE ^UNCLASSIFIABLE^ [Concomitant]
     Indication: ACNE
  18. WELLBUTRIN [Concomitant]
     Dosage: UNK
     Dates: start: 20070401, end: 20080501
  19. BUPROPION HCL [Concomitant]
     Dosage: UNK
     Dates: start: 20070401, end: 20080501
  20. ZOLPIDEM [Concomitant]
     Dosage: UNK
     Dates: start: 20070401, end: 20080501

REACTIONS (1)
  - DEEP VEIN THROMBOSIS [None]
